FAERS Safety Report 7370683-5 (Version None)
Quarter: 2011Q1

REPORT INFORMATION
  Report Type: 
  Country: None (occurrence: None)
  Receive Date: 20110323
  Receipt Date: 20110311
  Transmission Date: 20110831
  Serious: Yes (Hospitalization)
  Sender: FDA-Public Use
  Company Number: US-MYLANLABS-2011S1005492

PATIENT
  Age: 69 Year
  Sex: Male
  Weight: 102.06 kg

DRUGS (8)
  1. MECLIZINE [Concomitant]
     Indication: DIZZINESS
  2. MULTIVITAMIN [Concomitant]
  3. HYDROCHLOROTHIAZIDE [Concomitant]
  4. FINASTERIDE [Concomitant]
  5. TAMSULOSIN HCL [Concomitant]
  6. METFORMIN HCL [Concomitant]
  7. BICALUTAMIDE [Suspect]
     Indication: PROSTATIC SPECIFIC ANTIGEN
     Route: 048
     Dates: start: 20100501
  8. LISINOPRIL [Concomitant]

REACTIONS (4)
  - BLOOD MAGNESIUM DECREASED [None]
  - DYSPNOEA [None]
  - CHEST PAIN [None]
  - BLOOD POTASSIUM DECREASED [None]
